FAERS Safety Report 8542992-5 (Version None)
Quarter: 2012Q3

REPORT INFORMATION
  Report Type: 
  Country: None (occurrence: None)
  Receive Date: 20120727
  Receipt Date: 20120719
  Transmission Date: 20120928
  Serious: Yes (Other)
  Sender: FDA-Public Use
  Company Number: GB-BAYER-2012-061867

PATIENT
  Age: 40 Year
  Sex: Female
  Weight: 67 kg

DRUGS (5)
  1. CITALOPRAM HYDROBROMIDE [Concomitant]
     Dosage: 20 MG, UNK
     Dates: start: 20110601
  2. MIRENA [Suspect]
     Dosage: DAILY DOSE 20 MCG/24HR
     Dates: start: 20060101, end: 20111104
  3. IBRUPROFEN [Concomitant]
     Dosage: 10 %, UNK
     Dates: start: 20110201
  4. SEROQUEL [Concomitant]
     Dosage: 25 MG, BID
  5. MIRENA [Suspect]
     Dosage: 20 ?G/D, CONT
     Route: 015
     Dates: start: 20111101

REACTIONS (10)
  - HORMONE LEVEL ABNORMAL [None]
  - IRRITABILITY [None]
  - DISTURBANCE IN ATTENTION [None]
  - MYALGIA [None]
  - DEVICE BREAKAGE [None]
  - HOT FLUSH [None]
  - MENOPAUSE [None]
  - DEVICE DISLOCATION [None]
  - FATIGUE [None]
  - MIGRAINE [None]
